FAERS Safety Report 9301813 (Version 1)
Quarter: 2013Q2

REPORT INFORMATION
  Report Type: Spontaneous
  Country: US (occurrence: US)
  Receive Date: 20130521
  Receipt Date: 20130521
  Transmission Date: 20140414
  Serious: No
  Sender: FDA-Public Use
  Company Number: US-TEVA-339798USA

PATIENT
  Sex: Female
  Weight: 59.02 kg

DRUGS (3)
  1. ACTIQ [Suspect]
     Indication: BRACHIAL PLEXUS INJURY
     Route: 002
     Dates: start: 200209
  2. MORPHINE SULFATE [Concomitant]
  3. GABAPENTIN [Concomitant]

REACTIONS (2)
  - Application site irritation [Recovered/Resolved]
  - Medication error [Unknown]
